FAERS Safety Report 11462111 (Version 3)
Quarter: 2015Q4

REPORT INFORMATION
  Report Type: Spontaneous
  Country: US (occurrence: US)
  Receive Date: 20150831
  Receipt Date: 20151027
  Transmission Date: 20160304
  Serious: No
  Sender: FDA-Public Use
  Company Number: US-ELI_LILLY_AND_COMPANY-US200910006794

PATIENT
  Age: 82 Year
  Sex: Female

DRUGS (17)
  1. PROTONIX [Concomitant]
     Active Substance: PANTOPRAZOLE SODIUM
     Dosage: 40 MG, DAILY (1/D)
  2. CLONAZEPAM. [Concomitant]
     Active Substance: CLONAZEPAM
     Dosage: 1 MG, DAILY (1/D)
     Route: 048
  3. INSULIN [Concomitant]
     Active Substance: INSULIN NOS
     Dosage: UNK, DAILY (1/D)
     Route: 058
  4. LYRICA [Concomitant]
     Active Substance: PREGABALIN
     Dosage: 50 MG, DAILY (1/D)
     Route: 048
  5. FORTEO [Suspect]
     Active Substance: TERIPARATIDE
     Dosage: 20 UG, DAILY (1/D)
     Route: 065
     Dates: start: 200909
  6. VICODIN ES [Concomitant]
     Active Substance: ACETAMINOPHEN\HYDROCODONE BITARTRATE
     Dosage: 1 D/F, 2/D
     Route: 048
  7. CALCIUM VIT D [Concomitant]
     Dosage: 500 MG, 3/D
  8. HALCION [Concomitant]
     Active Substance: TRIAZOLAM
     Dosage: 0.125 MG, DAILY (1/D)
     Route: 048
  9. CYMBALTA [Suspect]
     Active Substance: DULOXETINE HYDROCHLORIDE
     Dosage: UNK, UNKNOWN
     Dates: start: 200912, end: 2010
  10. CLONAZEPAM. [Concomitant]
     Active Substance: CLONAZEPAM
     Dosage: 1 MG, AS NEEDED
     Route: 048
  11. LIDOCAINE. [Concomitant]
     Active Substance: LIDOCAINE
     Dosage: 700 MG, DAILY (1/D)
     Route: 062
  12. PAMELOR [Concomitant]
     Active Substance: NORTRIPTYLINE HYDROCHLORIDE
     Dosage: 30 MG, DAILY (1/D)
     Route: 048
  13. OMEPRAZOLE. [Concomitant]
     Active Substance: OMEPRAZOLE
     Dosage: 20 MG, DAILY (1/D)
     Route: 048
  14. ACCUPRIL [Concomitant]
     Active Substance: QUINAPRIL HYDROCHLORIDE
     Dosage: 10 MG, DAILY (1/D)
     Dates: end: 201009
  15. LIDOCAINE. [Concomitant]
     Active Substance: LIDOCAINE
     Dosage: 1400 MG, DAILY (1/D)
     Route: 062
  16. PENLAC [Concomitant]
     Active Substance: CICLOPIROX
     Dosage: UNK, 2/D
  17. BOOST [Concomitant]

REACTIONS (21)
  - Fatigue [Unknown]
  - Weight decreased [Recovering/Resolving]
  - Blood pressure increased [Not Recovered/Not Resolved]
  - Bone pain [Unknown]
  - Muscle spasms [Not Recovered/Not Resolved]
  - Back pain [Not Recovered/Not Resolved]
  - Vitamin D decreased [Unknown]
  - Rotator cuff syndrome [Recovering/Resolving]
  - Bursitis [Unknown]
  - Radicular pain [Not Recovered/Not Resolved]
  - Fibromyalgia [Not Recovered/Not Resolved]
  - Myalgia [Not Recovered/Not Resolved]
  - Insomnia [Unknown]
  - Pain [Not Recovered/Not Resolved]
  - Raynaud^s phenomenon [Unknown]
  - Depression [Unknown]
  - Somnolence [Unknown]
  - Spinal osteoarthritis [Unknown]
  - Cataract [Unknown]
  - Arthralgia [Not Recovered/Not Resolved]
  - Pain in extremity [Not Recovered/Not Resolved]

NARRATIVE: CASE EVENT DATE: 201002
